FAERS Safety Report 17976083 (Version 4)
Quarter: 2020Q4

REPORT INFORMATION
  Report Type: Spontaneous
  Country: US (occurrence: US)
  Receive Date: 20200702
  Receipt Date: 20201111
  Transmission Date: 20210113
  Serious: No
  Sender: FDA-Public Use
  Company Number: US-GLAXOSMITHKLINE-US2020AMR116596

PATIENT
  Sex: Female

DRUGS (3)
  1. ZEJULA [Suspect]
     Active Substance: NIRAPARIB
     Dosage: 200 MG, QD
  2. ZEJULA [Suspect]
     Active Substance: NIRAPARIB
     Indication: OVARIAN CANCER
     Dosage: 200 MG, QD, QPM
     Route: 065
     Dates: start: 20200624
  3. ZEJULA [Suspect]
     Active Substance: NIRAPARIB
     Dosage: UNK

REACTIONS (7)
  - Migraine [Unknown]
  - Blood pressure increased [Not Recovered/Not Resolved]
  - Headache [Recovering/Resolving]
  - Chest discomfort [Unknown]
  - Insomnia [Recovering/Resolving]
  - Myalgia [Not Recovered/Not Resolved]
  - Blood pressure fluctuation [Unknown]
